FAERS Safety Report 20322392 (Version 1)
Quarter: 2022Q1

REPORT INFORMATION
  Report Type: Spontaneous
  Country: SI (occurrence: SI)
  Receive Date: 20220111
  Receipt Date: 20220111
  Transmission Date: 20220423
  Serious: Yes (Death, Hospitalization)
  Sender: FDA-Public Use
  Company Number: SI-BAYER-2022A000948

PATIENT
  Sex: Male

DRUGS (1)
  1. NEXAVAR [Suspect]
     Active Substance: SORAFENIB
     Dosage: 400 MG, BID
     Dates: start: 20211217, end: 20211227

REACTIONS (3)
  - Death [Fatal]
  - C-reactive protein increased [None]
  - Acute kidney injury [None]

NARRATIVE: CASE EVENT DATE: 20220104
